FAERS Safety Report 8525738 (Version 3)
Quarter: 2014Q4

REPORT INFORMATION
  Report Type: Spontaneous
  Country: US (occurrence: US)
  Receive Date: 20120423
  Receipt Date: 20141031
  Transmission Date: 20150529
  Serious: Yes (Hospitalization, Other)
  Sender: FDA-Public Use
  Company Number: US-ROCHE-1022408

PATIENT
  Age: 32 Year
  Sex: Female
  Weight: 74.91 kg

DRUGS (2)
  1. ACCUTANE [Suspect]
     Active Substance: ISOTRETINOIN
     Indication: ACNE
     Route: 065
     Dates: start: 199301, end: 199312
  2. ACCUTANE [Suspect]
     Active Substance: ISOTRETINOIN
     Route: 065
     Dates: start: 199401, end: 199406

REACTIONS (7)
  - Crohn^s disease [Unknown]
  - Intestinal obstruction [Unknown]
  - Anal fissure [Unknown]
  - Inflammatory bowel disease [Unknown]
  - Abscess intestinal [Unknown]
  - Arthritis [Unknown]
  - Erythema nodosum [Unknown]

NARRATIVE: CASE EVENT DATE: 1997
